FAERS Safety Report 5042334-6 (Version None)
Quarter: 2006Q2

REPORT INFORMATION
  Report Type: 
  Country: None (occurrence: None)
  Receive Date: 20060601
  Receipt Date: 20060331
  Transmission Date: 20061013
  Serious: No
  Sender: FDA-Public Use
  Company Number: 2006PV011271

PATIENT
  Age: 56 Year
  Sex: Female

DRUGS (8)
  1. BYETTA [Suspect]
     Indication: DRUG USE FOR UNKNOWN INDICATION
     Dosage: 10 MCG;SC
     Route: 058
     Dates: start: 20051109
  2. STARLIX [Concomitant]
  3. GLUCOPHAGE [Concomitant]
  4. HYZAAR [Concomitant]
  5. TOPROL-XL [Concomitant]
  6. FOSAMAX [Concomitant]
  7. LYRICA [Concomitant]
  8. ZETIA [Concomitant]

REACTIONS (1)
  - SYNCOPE [None]
